FAERS Safety Report 7021918-X (Version None)
Quarter: 2010Q3

REPORT INFORMATION
  Report Type: 
  Country: None (occurrence: None)
  Receive Date: 20100930
  Receipt Date: 20100920
  Transmission Date: 20110219
  Serious: Yes (Other)
  Sender: FDA-Public Use
  Company Number: US-WYE-H17623210

PATIENT
  Sex: Male
  Weight: 69.46 kg

DRUGS (6)
  1. PRISTIQ [Suspect]
     Indication: DEPRESSION
     Route: 048
     Dates: start: 20100501, end: 20100816
  2. PRISTIQ [Suspect]
     Dates: start: 20100817
  3. KLONOPIN [Suspect]
     Indication: BACK PAIN
  4. VICODIN [Suspect]
     Indication: BACK PAIN
  5. MOBIC [Concomitant]
  6. BUSPAR [Concomitant]
     Dosage: 0.4 MG, UNSPECIFIED FREQUENCY

REACTIONS (3)
  - ANGER [None]
  - BACK INJURY [None]
  - DRUG INEFFECTIVE [None]
